FAERS Safety Report 24812750 (Version 2)
Quarter: 2025Q1

REPORT INFORMATION
  Report Type: Report from Study
  Country: US (occurrence: US)
  Receive Date: 20250107
  Receipt Date: 20250204
  Transmission Date: 20250408
  Serious: No
  Sender: SUNOVION
  Company Number: US-SUMITOMO PHARMA SWITZERLAND GMBH-2024SPA006475

PATIENT

DRUGS (4)
  1. ORGOVYX [Suspect]
     Active Substance: RELUGOLIX
     Indication: Prostate cancer
     Dosage: 360 MG, SINGLE
     Route: 048
     Dates: start: 202412, end: 202412
  2. ORGOVYX [Suspect]
     Active Substance: RELUGOLIX
     Dosage: 120 MG, QD
     Route: 048
     Dates: start: 202412
  3. CRANBERRY [Concomitant]
     Active Substance: CRANBERRY
     Route: 065
  4. IBUPROFEN [Concomitant]
     Active Substance: IBUPROFEN
     Route: 065

REACTIONS (5)
  - Inflammation [Unknown]
  - Dysuria [Unknown]
  - Urinary tract infection [Unknown]
  - Fatigue [Unknown]
  - Product dose omission issue [Unknown]
